FAERS Safety Report 8975375 (Version 1)
Quarter: 2012Q4

REPORT INFORMATION
  Report Type: 
  Country: US (occurrence: US)
  Receive Date: 20121219
  Receipt Date: 20121219
  Transmission Date: 20130627
  Serious: Yes (Hospitalization)
  Sender: FDA-Public Use
  Company Number: US-B.I. PHARMACEUTICALS,INC./RIDGEFIELD-2012-BI-03009BP

PATIENT
  Sex: Female
  Weight: 50 kg

DRUGS (3)
  1. MOBIC [Suspect]
     Indication: SWELLING
     Dosage: 15 mg
     Route: 048
     Dates: start: 2007, end: 201105
  2. MOBIC [Suspect]
     Indication: OEDEMA PERIPHERAL
     Route: 048
     Dates: start: 201107
  3. MOBIC [Suspect]
     Route: 048

REACTIONS (8)
  - Subdural haematoma [Recovered/Resolved]
  - Fall [Recovered/Resolved]
  - Fall [Recovered/Resolved]
  - Contusion [Recovered/Resolved]
  - Confusional state [Recovered/Resolved]
  - Arthralgia [Not Recovered/Not Resolved]
  - Back pain [Not Recovered/Not Resolved]
  - Haemorrhage [Recovered/Resolved]
